FAERS Safety Report 6806302-3 (Version None)
Quarter: 2010Q2

REPORT INFORMATION
  Report Type: 
  Country: None (occurrence: None)
  Receive Date: 20100629
  Receipt Date: 20080129
  Transmission Date: 20101027
  Serious: No
  Sender: FDA-Public Use
  Company Number: US-PFIZER INC-2008005050

PATIENT
  Sex: Male

DRUGS (3)
  1. VIAGRA [Suspect]
  2. NEXIUM [Concomitant]
     Indication: GASTROINTESTINAL DISORDER
  3. CARDIOVASCULAR SYSTEM DRUGS [Concomitant]
     Indication: BLOOD PRESSURE ABNORMAL

REACTIONS (4)
  - ABDOMINAL PAIN UPPER [None]
  - DYSPEPSIA [None]
  - ERECTILE DYSFUNCTION [None]
  - INSOMNIA [None]
